FAERS Safety Report 12082755 (Version 1)
Quarter: 2016Q1

REPORT INFORMATION
  Report Type: Spontaneous
  Country: US (occurrence: None)
  Receive Date: 20160216
  Receipt Date: 20160216
  Transmission Date: 20160526
  Serious: Yes (Death)
  Sender: FDA-Public Use
  Company Number: None

PATIENT
  Age: 50 Year
  Sex: Male
  Weight: 95.26 kg

DRUGS (6)
  1. METOPROLOL SUCC ER [Concomitant]
     Active Substance: METOPROLOL SUCCINATE
  2. PURITY PRODUCTS PERFECT MULTI VITAMIN [Concomitant]
  3. ASPIRIN. [Concomitant]
     Active Substance: ASPIRIN
  4. FLECAINIDE ACETATE 150MG ROXANE LABS [Suspect]
     Active Substance: FLECAINIDE ACETATE
     Indication: ATRIAL FIBRILLATION
     Dosage: 1 PILL TWICE DAILY TAKEN BY MOUTH
     Route: 048
     Dates: start: 20160124, end: 20160124
  5. CAFFEINE TABLETS/ENERGY DRINKS [Concomitant]
  6. ST. JUDE MEDICAL PACEMAKER MODEL PM3210 [Concomitant]

REACTIONS (4)
  - Brain hypoxia [None]
  - Pulse absent [None]
  - Dyspnoea [None]
  - Coma [None]

NARRATIVE: CASE EVENT DATE: 20160125
